FAERS Safety Report 17015135 (Version 1)
Quarter: 2019Q4

REPORT INFORMATION
  Report Type: Spontaneous
  Country: GB (occurrence: GB)
  Receive Date: 20191111
  Receipt Date: 20191111
  Transmission Date: 20200122
  Serious: Yes (Hospitalization)
  Sender: FDA-Public Use
  Company Number: GB-ACCORD-160684

PATIENT
  Age: 83 Year
  Sex: Male

DRUGS (7)
  1. FUROSEMIDE. [Suspect]
     Active Substance: FUROSEMIDE
     Indication: PRODUCT USED FOR UNKNOWN INDICATION
     Route: 048
     Dates: start: 20180725, end: 20180731
  2. ZOLADEX [Concomitant]
     Active Substance: GOSERELIN ACETATE
     Dosage: PRE-FILLED SYRINGE
  3. CODEINE PHOSPHATE/PARACETAMOL [Concomitant]
     Dosage: 30MG/500MG
  4. SOLIFENACIN/SOLIFENACIN SUCCINATE [Concomitant]
  5. LATANOPROST. [Concomitant]
     Active Substance: LATANOPROST
     Dosage: 50 MICROGRAM/ML
     Route: 047
  6. OMEPRAZOLE. [Concomitant]
     Active Substance: OMEPRAZOLE
  7. SODIUM BICARBONATE. [Concomitant]
     Active Substance: SODIUM BICARBONATE
     Dates: start: 20180725

REACTIONS (1)
  - Acute kidney injury [Recovering/Resolving]

NARRATIVE: CASE EVENT DATE: 20180801
